FAERS Safety Report 19145809 (Version 1)
Quarter: 2021Q2

REPORT INFORMATION
  Report Type: Report from Study
  Country: US (occurrence: US)
  Receive Date: 20210416
  Receipt Date: 20210416
  Transmission Date: 20210717
  Serious: Yes (Other)
  Sender: FDA-Public Use
  Company Number: US-SUN PHARMACEUTICAL INDUSTRIES LTD-2021R1-291758

PATIENT
  Age: 35 Year
  Sex: Female

DRUGS (3)
  1. DEXAMETHASONE. [Suspect]
     Active Substance: DEXAMETHASONE
     Indication: ACUTE ZONAL OCCULT OUTER RETINOPATHY
     Dosage: UNK ( 3 TREATMENTS)
  2. PREDNISONE. [Suspect]
     Active Substance: PREDNISONE
     Dosage: UNK  (DOSE TAPERED)
     Route: 065
  3. PREDNISONE. [Suspect]
     Active Substance: PREDNISONE
     Indication: ACUTE ZONAL OCCULT OUTER RETINOPATHY
     Dosage: 60 MILLIGRAM
     Route: 065

REACTIONS (2)
  - Cataract subcapsular [Recovering/Resolving]
  - Ocular hypertension [Recovering/Resolving]
